FAERS Safety Report 19676813 (Version 1)
Quarter: 2021Q3

REPORT INFORMATION
  Report Type: Spontaneous
  Country: FR (occurrence: FR)
  Receive Date: 20210810
  Receipt Date: 20210810
  Transmission Date: 20211014
  Serious: Yes (Hospitalization)
  Sender: FDA-Public Use
  Company Number: FR-SUN PHARMACEUTICAL INDUSTRIES LTD-2021RR-307297

PATIENT
  Age: 63 Year
  Sex: Male
  Weight: 89 kg

DRUGS (2)
  1. OXALIPLATIN. [Suspect]
     Active Substance: OXALIPLATIN
     Indication: COLORECTAL CANCER METASTATIC
     Dosage: 195 MILLIGRAM, UNK
     Route: 042
     Dates: start: 20210127, end: 20210323
  2. TOMUDEX 2 MG, POUDRE POUR SOLUTION POUR PERFUSION [Suspect]
     Active Substance: RALTITREXED
     Indication: COLORECTAL CANCER METASTATIC
     Dosage: 3 MILLIGRAM, UNK
     Route: 042
     Dates: start: 20210127, end: 20210323

REACTIONS (2)
  - Diarrhoea [Not Recovered/Not Resolved]
  - Pancytopenia [Not Recovered/Not Resolved]

NARRATIVE: CASE EVENT DATE: 202102
